FAERS Safety Report 15643360 (Version 1)
Quarter: 2018Q4

REPORT INFORMATION
  Report Type: Spontaneous
  Country: BE (occurrence: BE)
  Receive Date: 20181121
  Receipt Date: 20181121
  Transmission Date: 20190205
  Serious: Yes (Hospitalization, Other)
  Sender: FDA-Public Use
  Company Number: BE-AMGEN-BELSP2018149914

PATIENT
  Age: 52 Year
  Sex: Male
  Weight: 90 kg

DRUGS (2)
  1. NPLATE [Suspect]
     Active Substance: ROMIPLOSTIM
     Indication: PRODUCT USED FOR UNKNOWN INDICATION
     Dosage: 7 MUG/KG, QWK
     Route: 065
     Dates: start: 20180730
  2. NPLATE [Suspect]
     Active Substance: ROMIPLOSTIM
     Dosage: 6 MUG/KG, QWK
     Route: 065
     Dates: start: 20181105

REACTIONS (3)
  - Peripheral embolism [Recovered/Resolved]
  - Platelet count abnormal [Not Recovered/Not Resolved]
  - Skin ulcer [Recovered/Resolved]

NARRATIVE: CASE EVENT DATE: 20181001
